FAERS Safety Report 9689787 (Version 1)
Quarter: 2013Q4

REPORT INFORMATION
  Report Type: Spontaneous
  Country: GB (occurrence: GB)
  Receive Date: 20131115
  Receipt Date: 20131115
  Transmission Date: 20140711
  Serious: Yes (Life-Threatening)
  Sender: FDA-Public Use
  Company Number: GB-JNJFOC-20131104889

PATIENT
  Age: 42 Year
  Sex: Male
  Weight: 86 kg

DRUGS (4)
  1. FENTANYL [Suspect]
     Indication: PAIN
     Route: 062
     Dates: start: 20131017, end: 20131017
  2. PARACETAMOL [Concomitant]
     Indication: PAIN
     Route: 048
  3. PAROXETINE [Concomitant]
     Indication: DEPRESSION
     Route: 048
  4. SALBUTAMOL [Concomitant]
     Indication: ASTHMA
     Route: 055

REACTIONS (2)
  - Asthma [Recovered/Resolved]
  - Wheezing [Recovered/Resolved]
